FAERS Safety Report 6312783-4 (Version None)
Quarter: 2009Q3

REPORT INFORMATION
  Report Type: 
  Country: None (occurrence: None)
  Receive Date: 20090817
  Receipt Date: 20090817
  Transmission Date: 20100115
  Serious: Yes (Other)
  Sender: FDA-Public Use
  Company Number: None

PATIENT
  Age: 53 Year
  Sex: Male

DRUGS (1)
  1. CHANTIX [Suspect]
     Dosage: 1 MG CONTINUATION PACK BID PO
     Route: 048
     Dates: start: 20080401, end: 20090701

REACTIONS (7)
  - AMNESIA [None]
  - ANXIETY [None]
  - COGNITIVE DISORDER [None]
  - CRYING [None]
  - DEPRESSION [None]
  - FEAR [None]
  - PARANOIA [None]
